FAERS Safety Report 10213774 (Version 1)
Quarter: 2014Q2

REPORT INFORMATION
  Report Type: Spontaneous
  Country: FR (occurrence: None)
  Receive Date: 20140530
  Receipt Date: 20140530
  Transmission Date: 20141212
  Serious: Yes (Other)
  Sender: FDA-Public Use
  Company Number: 2361204

PATIENT
  Age: 54 Year
  Sex: Male

DRUGS (6)
  1. DOCETAXEL [Suspect]
     Indication: LUNG NEOPLASM MALIGNANT
     Dosage: NOT OTHERWISE SPECIFIED
     Route: 042
     Dates: start: 20140213, end: 20140213
  2. CARBOPLATINE [Concomitant]
  3. NAVELBINE [Concomitant]
  4. TINAZPARIN [Concomitant]
  5. ESOMEPRAZOLE [Concomitant]
  6. PREDNISOLONE [Concomitant]

REACTIONS (6)
  - Neutropenia [None]
  - Lymphopenia [None]
  - Acute respiratory distress syndrome [None]
  - Leukopenia [None]
  - Acute respiratory failure [None]
  - Infection [None]
